FAERS Safety Report 6470989-8 (Version None)
Quarter: 2009Q4

REPORT INFORMATION
  Report Type: 
  Country: None (occurrence: None)
  Receive Date: 20091201
  Receipt Date: 20091119
  Transmission Date: 20100525
  Serious: Yes (Death, Other)
  Sender: FDA-Public Use
  Company Number: AE09-019A

PATIENT
  Sex: Male

DRUGS (2)
  1. LORTAB [Suspect]
  2. OXYCODONE [Suspect]

REACTIONS (2)
  - DRUG SCREEN POSITIVE [None]
  - OVERDOSE [None]
